FAERS Safety Report 14628717 (Version 2)
Quarter: 2018Q2

REPORT INFORMATION
  Report Type: Spontaneous
  Country: US (occurrence: US)
  Receive Date: 20180313
  Receipt Date: 20180531
  Transmission Date: 20180711
  Serious: Yes (Hospitalization, Other)
  Sender: FDA-Public Use
  Company Number: US-009507513-1803USA002269

PATIENT
  Sex: Male

DRUGS (1)
  1. BELSOMRA [Suspect]
     Active Substance: SUVOREXANT
     Indication: INSOMNIA
     Dosage: 10 OR 15, UNKNOWN
     Route: 065
     Dates: start: 2018

REACTIONS (6)
  - Somnambulism [Unknown]
  - Discomfort [Unknown]
  - Mental disorder [Unknown]
  - Middle insomnia [Unknown]
  - Aggression [Unknown]
  - Nightmare [Unknown]

NARRATIVE: CASE EVENT DATE: 2018
